FAERS Safety Report 6842483-3 (Version None)
Quarter: 2010Q3

REPORT INFORMATION
  Report Type: 
  Country: None (occurrence: None)
  Receive Date: 20100714
  Receipt Date: 20080207
  Transmission Date: 20110219
  Serious: Yes (Other)
  Sender: FDA-Public Use
  Company Number: US-PFIZER INC-2007063143

PATIENT
  Sex: Female
  Weight: 53.636 kg

DRUGS (4)
  1. CHANTIX [Suspect]
     Indication: SMOKING CESSATION THERAPY
     Dates: start: 20070718
  2. LIPITOR [Concomitant]
     Dates: start: 20070601
  3. LEXAPRO [Concomitant]
     Indication: ANXIETY
  4. PAXIL [Concomitant]
     Indication: ANXIETY

REACTIONS (4)
  - ABDOMINAL PAIN UPPER [None]
  - ANXIETY [None]
  - NAUSEA [None]
  - PANIC REACTION [None]
